FAERS Safety Report 6941980-X (Version None)
Quarter: 2010Q3

REPORT INFORMATION
  Report Type: 
  Country: None (occurrence: None)
  Receive Date: 20100826
  Receipt Date: 20100813
  Transmission Date: 20110219
  Serious: Yes (Hospitalization, Other)
  Sender: FDA-Public Use
  Company Number: PHHY2010US54044

PATIENT
  Sex: Male

DRUGS (2)
  1. EXJADE [Suspect]
     Indication: IRON OVERLOAD
     Dosage: 1000 MG, DAILY
     Route: 048
     Dates: start: 20080101
  2. PENICILLIN VK [Concomitant]
     Dosage: 500 MG
     Route: 048

REACTIONS (3)
  - BONE PAIN [None]
  - CHEST PAIN [None]
  - SICKLE CELL ANAEMIA WITH CRISIS [None]
